FAERS Safety Report 5624731-0 (Version None)
Quarter: 2008Q1

REPORT INFORMATION
  Report Type: 
  Country: None (occurrence: None)
  Receive Date: 20080213
  Receipt Date: 20080205
  Transmission Date: 20080703
  Serious: Yes (Other)
  Sender: FDA-Public Use
  Company Number: US-GENENTECH-250009

PATIENT
  Age: 58 Year
  Sex: Female

DRUGS (6)
  1. RITUXAN [Suspect]
     Indication: IDIOPATHIC THROMBOCYTOPENIC PURPURA
     Dosage: UNK UNK, Q3W
     Route: 065
     Dates: start: 20060512
  2. RITUXAN [Suspect]
     Dosage: UNK, QOW
     Dates: start: 20070926
  3. CYCLOPHOSPHAMIDE [Concomitant]
     Indication: IDIOPATHIC THROMBOCYTOPENIC PURPURA
     Dosage: UNK, Q3W
     Dates: start: 20060512
  4. DOXORUBICIN HCL [Concomitant]
     Indication: IDIOPATHIC THROMBOCYTOPENIC PURPURA
     Dosage: UNK, Q3W
     Dates: start: 20060512
  5. VINCRISTINE [Concomitant]
     Indication: IDIOPATHIC THROMBOCYTOPENIC PURPURA
     Dosage: UNK, Q3W
     Dates: start: 20060512
  6. PREDNISONE TAB [Concomitant]
     Indication: IDIOPATHIC THROMBOCYTOPENIC PURPURA
     Dosage: UNK, Q3W
     Dates: start: 20060512

REACTIONS (12)
  - AMNESIA [None]
  - ARTHRALGIA [None]
  - BRONCHITIS [None]
  - BRONCHOSPASM [None]
  - COUGH [None]
  - DISTURBANCE IN ATTENTION [None]
  - INFUSION RELATED REACTION [None]
  - NAUSEA [None]
  - OEDEMA PERIPHERAL [None]
  - PAIN IN EXTREMITY [None]
  - PYREXIA [None]
  - VOMITING [None]
